FAERS Safety Report 25517895 (Version 2)
Quarter: 2025Q3

REPORT INFORMATION
  Report Type: Report from Study
  Country: US (occurrence: US)
  Receive Date: 20250704
  Receipt Date: 20250810
  Transmission Date: 20251020
  Serious: Yes (Other)
  Sender: ALEXION PHARMACEUTICALS
  Company Number: US-AstraZeneca-CH-00898372A

PATIENT
  Sex: Male

DRUGS (4)
  1. OSIMERTINIB [Suspect]
     Active Substance: OSIMERTINIB
     Indication: Non-small cell lung cancer
     Dosage: 80 MILLIGRAM, QD
  2. LICORICE [Concomitant]
     Active Substance: LICORICE
     Route: 065
  3. QUERCETIN [Concomitant]
     Active Substance: QUERCETIN
     Route: 065
  4. HERBALS [Concomitant]
     Active Substance: HERBALS
     Route: 065

REACTIONS (1)
  - Sinus disorder [Not Recovered/Not Resolved]
